FAERS Safety Report 10378723 (Version 1)
Quarter: 2014Q3

REPORT INFORMATION
  Report Type: Spontaneous
  Country: US (occurrence: None)
  Receive Date: 20140811
  Receipt Date: 20140811
  Transmission Date: 20150326
  Serious: No
  Sender: FDA-Public Use
  Company Number: None

PATIENT
  Age: 14 Year
  Sex: Male
  Weight: 40.82 kg

DRUGS (1)
  1. ZONISAMIDE. [Suspect]
     Active Substance: ZONISAMIDE
     Indication: CONVULSION
     Dosage: 3 PILLS
     Route: 048
     Dates: start: 20140719, end: 20140728

REACTIONS (12)
  - Feeling abnormal [None]
  - Feeling of despair [None]
  - Aggression [None]
  - Anger [None]
  - Fear [None]
  - Hypophagia [None]
  - Disturbance in attention [None]
  - Activities of daily living impaired [None]
  - Agitation [None]
  - Paranoia [None]
  - Irritability [None]
  - Sleep disorder [None]

NARRATIVE: CASE EVENT DATE: 20140728
